FAERS Safety Report 19175273 (Version 2)
Quarter: 2022Q1

REPORT INFORMATION
  Report Type: Spontaneous
  Country: US (occurrence: US)
  Receive Date: 20210423
  Receipt Date: 20220307
  Transmission Date: 20220423
  Serious: Yes (Death, Other)
  Sender: FDA-Public Use
  Company Number: US-GLAXOSMITHKLINE-US2021GSK090935

PATIENT
  Sex: Male

DRUGS (3)
  1. RANITIDINE HYDROCHLORIDE [Suspect]
     Active Substance: RANITIDINE HYDROCHLORIDE
     Indication: Product used for unknown indication
     Dosage: UNK
     Route: 065
  2. ZANTAC [Suspect]
     Active Substance: RANITIDINE HYDROCHLORIDE
     Indication: Dyspepsia
     Dosage: 150 MG, QD
     Route: 065
     Dates: start: 201501, end: 201901
  3. RANITIDINE [Suspect]
     Active Substance: RANITIDINE
     Indication: Dyspepsia
     Dosage: 150 MG, QD
     Route: 065
     Dates: start: 201501, end: 201901

REACTIONS (16)
  - Pneumonia aspiration [Fatal]
  - Gastric cancer [Unknown]
  - Haematological malignancy [Unknown]
  - Escherichia sepsis [Unknown]
  - Adenocarcinoma gastric [Unknown]
  - Upper gastrointestinal haemorrhage [Unknown]
  - Gastric cancer stage I [Unknown]
  - Tumour haemorrhage [Unknown]
  - Plasma cell myeloma [Unknown]
  - Plasma cell myeloma in remission [Unknown]
  - Gastric neoplasm [Unknown]
  - Stomach mass [Unknown]
  - Chronic gastritis [Unknown]
  - Gastric dysplasia [Unknown]
  - Leukocytosis [Unknown]
  - Dysphagia [Unknown]
